FAERS Safety Report 5924288-0 (Version None)
Quarter: 2008Q4

REPORT INFORMATION
  Report Type: 
  Country: None (occurrence: None)
  Receive Date: 20081020
  Receipt Date: 20081009
  Transmission Date: 20090506
  Serious: Yes (Hospitalization)
  Sender: FDA-Public Use
  Company Number: US-ELI_LILLY_AND_COMPANY-US200810002894

PATIENT
  Sex: Male
  Weight: 91.156 kg

DRUGS (10)
  1. BYETTA [Suspect]
     Indication: TYPE 2 DIABETES MELLITUS
     Dosage: 5 UG, 2/D
     Route: 058
     Dates: start: 20050101
  2. BYETTA [Suspect]
     Dosage: 10 UG, 2/D
     Route: 058
  3. LANTUS [Concomitant]
     Dosage: UNK, 2/D
  4. HUMALOG [Concomitant]
     Dosage: UNK, 3/D
  5. HUMULIN R [Concomitant]
     Dosage: UNK, 3/D
  6. LOTENSIN [Concomitant]
     Indication: CARDIAC DISORDER
     Dosage: UNK, UNKNOWN
     Dates: start: 20080901
  7. ATENOLOL [Concomitant]
     Indication: CARDIAC DISORDER
     Dosage: UNK, UNKNOWN
     Dates: start: 20080901, end: 20080101
  8. LOPID [Concomitant]
     Indication: CARDIAC DISORDER
     Dosage: UNK, UNKNOWN
     Dates: start: 20080901
  9. COQ10 [Concomitant]
     Dosage: UNK, UNKNOWN
  10. VITAMINS [Concomitant]
     Dosage: UNK, UNKNOWN

REACTIONS (5)
  - AMNESIA [None]
  - ANAESTHETIC COMPLICATION [None]
  - BLOOD GLUCOSE DECREASED [None]
  - GLYCOSYLATED HAEMOGLOBIN INCREASED [None]
  - KNEE ARTHROPLASTY [None]
